FAERS Safety Report 17635495 (Version 2)
Quarter: 2020Q3

REPORT INFORMATION
  Report Type: Spontaneous
  Country: US (occurrence: US)
  Receive Date: 20200407
  Receipt Date: 20200716
  Transmission Date: 20201102
  Serious: Yes (Hospitalization, Other)
  Sender: FDA-Public Use
  Company Number: US-DRREDDYS-USA/USA/20/0121619

PATIENT
  Age: 36 Year
  Sex: Female

DRUGS (3)
  1. PROGESTERONE. [Suspect]
     Active Substance: PROGESTERONE
     Indication: CONTRACEPTION
     Dosage: LOW?DOSE PROGESTERONE INTRAUTERINE DEVICE
  2. PROGESTERONE. [Suspect]
     Active Substance: PROGESTERONE
     Dosage: ESTROGEN?PROGESTERONE PATCH
     Route: 062
  3. HEPARIN SODIUM. [Suspect]
     Active Substance: HEPARIN SODIUM
     Indication: PRODUCT USED FOR UNKNOWN INDICATION
     Route: 041

REACTIONS (4)
  - Coronary artery dissection [Recovering/Resolving]
  - Ventricular hypokinesia [Recovering/Resolving]
  - Arterial intramural haematoma [Recovering/Resolving]
  - Disease progression [Recovering/Resolving]
